FAERS Safety Report 5504796-7 (Version None)
Quarter: 2007Q4

REPORT INFORMATION
  Report Type: 
  Country: None (occurrence: None)
  Receive Date: 20071031
  Receipt Date: 20071031
  Transmission Date: 20080405
  Serious: No
  Sender: FDA-Public Use
  Company Number: None

PATIENT
  Age: 19 Month
  Sex: Male

DRUGS (1)
  1. AMOXICILLIN [Suspect]
     Dosage: ORAL
     Route: 048
     Dates: start: 20071008, end: 20071015

REACTIONS (3)
  - RASH [None]
  - RASH MACULO-PAPULAR [None]
  - RASH PUSTULAR [None]
